FAERS Safety Report 13026078 (Version 1)
Quarter: 2016Q4

REPORT INFORMATION
  Report Type: Spontaneous
  Country: US (occurrence: US)
  Receive Date: 20161213
  Receipt Date: 20161213
  Transmission Date: 20170207
  Serious: Yes (Disabling, Other)
  Sender: FDA-Public Use
  Company Number: None

PATIENT
  Age: 50 Year
  Sex: Female
  Weight: 65.25 kg

DRUGS (14)
  1. VITAMIN D [Concomitant]
     Active Substance: CHOLECALCIFEROL
  2. ACIPHEX [Concomitant]
     Active Substance: RABEPRAZOLE SODIUM
  3. TRILEPTAL [Concomitant]
     Active Substance: OXCARBAZEPINE
  4. INVOKANA [Concomitant]
     Active Substance: CANAGLIFLOZIN
  5. LANTUS [Concomitant]
     Active Substance: INSULIN GLARGINE
  6. SEREVENT DISKUS [Concomitant]
     Active Substance: SALMETEROL XINAFOATE
  7. JANUVIA 25MG [Suspect]
     Active Substance: SITAGLIPTIN PHOSPHATE
     Indication: DIABETES MELLITUS
     Dosage: ?          QUANTITY:30 TABLET(S);?
     Route: 048
     Dates: start: 20161122, end: 20161212
  8. LEVOT- HYROXINE [Concomitant]
  9. VITAMIN C [Concomitant]
     Active Substance: ASCORBIC ACID
  10. CYMBALTA [Concomitant]
     Active Substance: DULOXETINE HYDROCHLORIDE
  11. TRAZODONE [Concomitant]
     Active Substance: TRAZODONE HYDROCHLORIDE
  12. SIMVASTATIN. [Concomitant]
     Active Substance: SIMVASTATIN
  13. QVA- R [Concomitant]
  14. STOOL SOFTENER ALIGN [Concomitant]

REACTIONS (12)
  - Withdrawal syndrome [None]
  - Influenza like illness [None]
  - Nasopharyngitis [None]
  - Malaise [None]
  - Lethargy [None]
  - Insomnia [None]
  - Confusional state [None]
  - Fatigue [None]
  - Depression [None]
  - Unevaluable event [None]
  - Dizziness [None]
  - Hypomania [None]

NARRATIVE: CASE EVENT DATE: 20161207
